FAERS Safety Report 16023958 (Version 2)
Quarter: 2019Q1

REPORT INFORMATION
  Report Type: Spontaneous
  Country: JP (occurrence: JP)
  Receive Date: 20190301
  Receipt Date: 20190306
  Transmission Date: 20190418
  Serious: Yes (Hospitalization, Other)
  Sender: FDA-Public Use
  Company Number: JP-JNJFOC-20190239482

PATIENT
  Age: 77 Year
  Sex: Female

DRUGS (1)
  1. XARELTO [Suspect]
     Active Substance: RIVAROXABAN
     Indication: ATRIAL FIBRILLATION
     Route: 048
     Dates: start: 201608

REACTIONS (3)
  - Cerebral infarction [Unknown]
  - Paralysis [Unknown]
  - Gastric fistula [Unknown]

NARRATIVE: CASE EVENT DATE: 20170208
